FAERS Safety Report 8319495-6 (Version None)
Quarter: 2012Q1

REPORT INFORMATION
  Report Type: 
  Country: None (occurrence: None)
  Receive Date: 20120315
  Receipt Date: 20110210
  Transmission Date: 20120608
  Serious: No
  Sender: FDA-Public Use
  Company Number: PHHY2011US05386

PATIENT
  Sex: Female

DRUGS (3)
  1. CHANTIX [Concomitant]
  2. GILENYA [Suspect]
     Indication: RELAPSING-REMITTING MULTIPLE SCLEROSIS
     Dosage: 0.5 MG, DAILY, ORAL
     Route: 048
     Dates: start: 20101112
  3. AVONEX [Concomitant]

REACTIONS (1)
  - HYPOAESTHESIA [None]
